FAERS Safety Report 6918099-7 (Version None)
Quarter: 2010Q3

REPORT INFORMATION
  Report Type: 
  Country: None (occurrence: None)
  Receive Date: 20100806
  Receipt Date: 20100802
  Transmission Date: 20110219
  Serious: Yes (Death, Other)
  Sender: FDA-Public Use
  Company Number: 654111

PATIENT
  Sex: Female

DRUGS (2)
  1. (OXALIPLATIN) [Suspect]
  2. (5-FU /00098801/) [Concomitant]

REACTIONS (4)
  - FATIGUE [None]
  - HAEMORRHAGE INTRACRANIAL [None]
  - HEADACHE [None]
  - THROMBOCYTOPENIA [None]
